FAERS Safety Report 8453967-9 (Version None)
Quarter: 2012Q2

REPORT INFORMATION
  Report Type: 
  Country: None (occurrence: None)
  Receive Date: 20120620
  Receipt Date: 20120612
  Transmission Date: 20120825
  Serious: Yes (Hospitalization, Other)
  Sender: FDA-Public Use
  Company Number: US-US-EMD SERONO, INC.-7068112

PATIENT
  Sex: Female

DRUGS (2)
  1. NEURONTIN [Concomitant]
     Indication: FIBROMYALGIA
  2. REBIF [Suspect]
     Indication: MULTIPLE SCLEROSIS
     Route: 058
     Dates: start: 20100913, end: 20120601

REACTIONS (4)
  - HEPATOMEGALY [None]
  - CERVICAL CORD COMPRESSION [None]
  - FALL [None]
  - MULTIPLE SCLEROSIS RELAPSE [None]
